FAERS Safety Report 18291790 (Version 11)
Quarter: 2021Q2

REPORT INFORMATION
  Report Type: Spontaneous
  Country: JP (occurrence: JP)
  Receive Date: 20200922
  Receipt Date: 20210503
  Transmission Date: 20210717
  Serious: Yes (Death, Hospitalization, Other)
  Sender: FDA-Public Use
  Company Number: JP-AMGEN-JPNSP2019173157

PATIENT
  Age: 76 Year
  Sex: Male
  Weight: 60.5 kg

DRUGS (22)
  1. PARSABIV [Suspect]
     Active Substance: ETELCALCETIDE HYDROCHLORIDE
     Indication: HYPERPARATHYROIDISM SECONDARY
     Dosage: 5 MILLIGRAM, 3 TIMES/WK
     Route: 010
     Dates: start: 20190411, end: 20200303
  2. ROCALTROL [Concomitant]
     Active Substance: CALCITRIOL
     Dosage: 1 MICROGRAM, 3 TIMES/WK
     Route: 041
     Dates: start: 20190912, end: 20200411
  3. REBAMIPIDE [Concomitant]
     Active Substance: REBAMIPIDE
     Indication: CHRONIC GASTRITIS
     Dosage: 300 MILLIGRAM, QD
     Route: 048
     Dates: end: 20210210
  4. EMLA [Concomitant]
     Active Substance: LIDOCAINE\PRILOCAINE
     Indication: PROPHYLAXIS
     Dosage: APPROPRIATE DOSAGE
     Route: 062
     Dates: start: 20200921, end: 20210209
  5. NESP [Concomitant]
     Active Substance: DARBEPOETIN ALFA
     Indication: NEPHROGENIC ANAEMIA
     Dosage: 15 MICROGRAM, QWK
     Route: 042
     Dates: end: 20191015
  6. ROCALTROL [Concomitant]
     Active Substance: CALCITRIOL
     Dosage: 0.5 MICROGRAM, 3 TIMES/WK
     Route: 041
     Dates: end: 20190910
  7. FOSRENOL [Concomitant]
     Active Substance: LANTHANUM CARBONATE
     Indication: HYPERPHOSPHATAEMIA
     Dosage: 750 MILLIGRAM, QD
     Route: 048
     Dates: start: 20200820, end: 20200916
  8. VASOLAN [VERAPAMIL HYDROCHLORIDE] [Concomitant]
     Active Substance: VERAPAMIL HYDROCHLORIDE
     Indication: ATRIAL FIBRILLATION
     Dosage: 120 MILLIGRAM, QD
     Route: 048
     Dates: end: 20210210
  9. WARFARIN [WARFARIN POTASSIUM] [Concomitant]
     Active Substance: WARFARIN POTASSIUM
     Indication: ATRIAL FIBRILLATION
     Dosage: 1.5 MILLIGRAM, QD
     Route: 048
     Dates: end: 20210210
  10. DARBEPOETIN ALFA [Concomitant]
     Active Substance: DARBEPOETIN ALFA
     Indication: NEPHROGENIC ANAEMIA
     Dosage: 15 MICROGRAM, QWK
     Route: 042
     Dates: start: 20191022, end: 20191022
  11. PARSABIV [Suspect]
     Active Substance: ETELCALCETIDE HYDROCHLORIDE
     Dosage: 2.5 MILLIGRAM, 3 TIMES/WK
     Route: 010
     Dates: start: 20200305, end: 20210209
  12. ROCALTROL [Concomitant]
     Active Substance: CALCITRIOL
     Dosage: 0.5 MICROGRAM, 3 TIMES/WK
     Route: 041
     Dates: start: 20200414
  13. P?TOL [SUCROFERRIC OXYHYDROXIDE] [Concomitant]
     Active Substance: SUCROFERRIC OXYHYDROXIDE
     Dosage: 750 MILLIGRAM, QD
     Route: 048
     Dates: start: 20200917, end: 20210210
  14. RABEPRAZOLE NA [Concomitant]
     Active Substance: RABEPRAZOLE SODIUM
     Indication: CHRONIC GASTRITIS
     Dosage: 10 MILLIGRAM, QD
     Route: 048
     Dates: end: 20210210
  15. ROCALTROL [Concomitant]
     Active Substance: CALCITRIOL
     Dosage: 1.5 MICROGRAM, QWK
     Route: 041
     Dates: start: 20200911, end: 20210209
  16. P?TOL [SUCROFERRIC OXYHYDROXIDE] [Concomitant]
     Active Substance: SUCROFERRIC OXYHYDROXIDE
     Indication: HYPERPHOSPHATAEMIA
     Dosage: 750 MILLIGRAM, QD
     Route: 048
     Dates: end: 20200819
  17. DAIOKANZOTO [Concomitant]
     Active Substance: LICORICE ROOT EXTRACT\RHUBARB
     Indication: CONSTIPATION
     Dosage: 5 GRAM, QD
     Route: 048
     Dates: end: 20210210
  18. DARBEPOETIN ALFA [Concomitant]
     Active Substance: DARBEPOETIN ALFA
     Dosage: 20 MICROGRAM, QWK
     Route: 042
     Dates: start: 20191029, end: 20200929
  19. BROTIZOLAM [Concomitant]
     Active Substance: BROTIZOLAM
     Indication: INSOMNIA
     Dosage: 0.25 MILLIGRAM, QD
     Route: 048
     Dates: end: 20210210
  20. FESIN [SACCHARATED IRON OXIDE] [Concomitant]
     Active Substance: IRON SUCROSE
     Dosage: 40 MILLIGRAM, QWK
     Route: 065
     Dates: start: 20201027, end: 20201231
  21. DARBEPOETIN ALFA [Concomitant]
     Active Substance: DARBEPOETIN ALFA
     Dosage: 30 MICROGRAM, QWK
     Route: 042
     Dates: start: 20201006, end: 20210210
  22. URSODEOXYCHOLIC ACID [Concomitant]
     Active Substance: URSODIOL
     Indication: CHOLESTASIS
     Dosage: 300 MILLIGRAM, QD
     Route: 048
     Dates: end: 20210210

REACTIONS (4)
  - Cardiac failure [Unknown]
  - Pneumonia bacterial [Fatal]
  - Peripheral arterial occlusive disease [Recovering/Resolving]
  - Shunt stenosis [Recovered/Resolved]

NARRATIVE: CASE EVENT DATE: 20190917
